FAERS Safety Report 24116430 (Version 1)
Quarter: 2024Q3

REPORT INFORMATION
  Report Type: Spontaneous
  Country: US (occurrence: US)
  Receive Date: 20240722
  Receipt Date: 20240722
  Transmission Date: 20241017
  Serious: No
  Sender: ASTELLAS
  Company Number: US-ASTELLAS-2023US037507

PATIENT
  Sex: Male

DRUGS (1)
  1. MYRBETRIQ [Suspect]
     Active Substance: MIRABEGRON
     Indication: Hypertonic bladder
     Route: 048
     Dates: end: 20231210

REACTIONS (6)
  - Arthralgia [Unknown]
  - Dizziness [Unknown]
  - Limb discomfort [Unknown]
  - Blood pressure increased [Unknown]
  - Asthma [Unknown]
  - Off label use [Unknown]
